FAERS Safety Report 19620321 (Version 1)
Quarter: 2021Q3

REPORT INFORMATION
  Report Type: Spontaneous
  Country: US (occurrence: US)
  Receive Date: 20210728
  Receipt Date: 20210728
  Transmission Date: 20211014
  Serious: Yes (Other)
  Sender: FDA-Public Use
  Company Number: US-NOVOPROD-832514

PATIENT
  Age: 65 Year
  Sex: Male

DRUGS (1)
  1. OZEMPIC [Suspect]
     Active Substance: SEMAGLUTIDE
     Indication: PRODUCT USED FOR UNKNOWN INDICATION
     Dosage: 1 MG, QW
     Route: 058

REACTIONS (7)
  - Limb discomfort [Unknown]
  - Constipation [Not Recovered/Not Resolved]
  - Back disorder [Unknown]
  - Extra dose administered [Recovered/Resolved]
  - Abdominal pain upper [Unknown]
  - Gastric disorder [Not Recovered/Not Resolved]
  - Appendix disorder [Not Recovered/Not Resolved]

NARRATIVE: CASE EVENT DATE: 20210710
